FAERS Safety Report 24778912 (Version 5)
Quarter: 2025Q2

REPORT INFORMATION
  Report Type: Report from Study
  Country: US (occurrence: US)
  Receive Date: 20241226
  Receipt Date: 20250619
  Transmission Date: 20250717
  Serious: Yes (Hospitalization, Other)
  Sender: ACADIA PHARMACEUTICALS
  Company Number: US-ACADIA PHARMACEUTICALS INC.-ACA-2024-TRF-008697

PATIENT
  Age: 15 Year
  Sex: Female

DRUGS (12)
  1. DAYBUE [Suspect]
     Active Substance: TROFINETIDE
     Indication: Rett syndrome
     Dosage: 40 MILLILITER, BID
     Dates: start: 20230705
  2. LAMICTAL [Concomitant]
     Active Substance: LAMOTRIGINE
  3. ALLOPURINOL [Concomitant]
     Active Substance: ALLOPURINOL
  4. BUDESONIDE [Concomitant]
     Active Substance: BUDESONIDE
     Route: 045
  5. CETIRIZINE [Concomitant]
     Active Substance: CETIRIZINE HYDROCHLORIDE
     Route: 048
  6. ACETAMINOPHEN [Concomitant]
     Active Substance: ACETAMINOPHEN
     Dosage: 10 MILLILITER, QID  AS NEEDED
  7. ACETAMINOPHEN [Concomitant]
     Active Substance: ACETAMINOPHEN
     Route: 048
  8. ALBUTEROL [Concomitant]
     Active Substance: ALBUTEROL
     Dosage: 90 MILLIGRAM, QID; 2-4 PUFFS BY MOUTH EVERY 6HRS AS NEEDED, INHALE 2 PUFFS WITH SPACER BEFORE AIRWAY
  9. DIPHENHYDRAMINE [Concomitant]
     Active Substance: DIPHENHYDRAMINE
     Dosage: 12.5 MG/5 ML
     Route: 048
  10. IBUPROFEN [Concomitant]
     Active Substance: IBUPROFEN
     Dosage: 10 MILLILITER, QID; 100 MG/5ML
  11. LACTOBACILLUS RHAMNOSUS [Concomitant]
     Active Substance: LACTOBACILLUS RHAMNOSUS
     Dosage: 1 DOSAGE FORM, QD; 15 BILLION CELL , SPRINKLE
  12. CHOLECALCIFEROL [Concomitant]
     Active Substance: CHOLECALCIFEROL

REACTIONS (12)
  - Cellulitis [Unknown]
  - Seizure [Unknown]
  - Pneumonia [Recovered/Resolved]
  - Stoma site discharge [Recovering/Resolving]
  - Complication associated with device [Recovered/Resolved]
  - Skin disorder [Unknown]
  - Constipation [Unknown]
  - Skin irritation [Unknown]
  - Musculoskeletal stiffness [Unknown]
  - Fatigue [Unknown]
  - Diarrhoea [Unknown]
  - Intentional dose omission [Unknown]

NARRATIVE: CASE EVENT DATE: 20241201
